FAERS Safety Report 21984217 (Version 6)
Quarter: 2023Q1

REPORT INFORMATION
  Report Type: Report from Study
  Country: US (occurrence: US)
  Receive Date: 20230213
  Receipt Date: 20230307
  Transmission Date: 20230417
  Serious: No
  Sender: FDA-Public Use
  Company Number: US-002147023-NVSC2023US032221

PATIENT
  Age: 80 Year
  Sex: Female

DRUGS (4)
  1. JADENU [Suspect]
     Active Substance: DEFERASIROX
     Indication: Iron metabolism disorder
     Dosage: 720 MG, QD
     Route: 048
     Dates: start: 20221006
  2. JADENU [Suspect]
     Active Substance: DEFERASIROX
     Indication: Blood test abnormal
     Dosage: UNK
     Route: 065
     Dates: start: 20230207
  3. JADENU [Suspect]
     Active Substance: DEFERASIROX
     Indication: Haemochromatosis
     Dosage: 360 MG, QD
     Route: 048
  4. JADENU [Suspect]
     Active Substance: DEFERASIROX
     Dosage: 720 MG, QD
     Route: 048
     Dates: start: 20230101

REACTIONS (7)
  - Illness [Unknown]
  - Pain [Unknown]
  - Product colour issue [Unknown]
  - Influenza like illness [Unknown]
  - Adverse drug reaction [Unknown]
  - Malaise [Unknown]
  - Nausea [Unknown]

NARRATIVE: CASE EVENT DATE: 20230207
